FAERS Safety Report 4859980-2 (Version None)
Quarter: 2005Q4

REPORT INFORMATION
  Report Type: 
  Country: None (occurrence: None)
  Receive Date: 20051219
  Receipt Date: 20050614
  Transmission Date: 20060501
  Serious: Yes (Hospitalization)
  Sender: FDA-Public Use
  Company Number: US-MERCK-0506USA02165

PATIENT
  Age: 59 Year
  Sex: Male
  Weight: 114 kg

DRUGS (3)
  1. VIOXX [Suspect]
     Indication: ARTHRITIS
     Route: 048
     Dates: start: 19990101, end: 20041001
  2. VICODIN [Concomitant]
     Route: 065
  3. LOTREL [Concomitant]
     Route: 065

REACTIONS (18)
  - ANGINA PECTORIS [None]
  - ARTHROPATHY [None]
  - ATRIAL FIBRILLATION [None]
  - ATRIAL THROMBOSIS [None]
  - CARDIOMYOPATHY [None]
  - CHEST PAIN [None]
  - DEPRESSION [None]
  - DILATATION ATRIAL [None]
  - DYSLIPIDAEMIA [None]
  - DYSPNOEA [None]
  - MITRAL VALVE INCOMPETENCE [None]
  - MYOCARDIAL INFARCTION [None]
  - PROSTATE CANCER [None]
  - RENAL FAILURE [None]
  - ROTATOR CUFF SYNDROME [None]
  - THROMBOSIS [None]
  - TRICUSPID VALVE INCOMPETENCE [None]
  - VENTRICULAR DYSFUNCTION [None]
